FAERS Safety Report 11148209 (Version 2)
Quarter: 2016Q2

REPORT INFORMATION
  Report Type: Report from Study
  Country: AU (occurrence: AU)
  Receive Date: 20150529
  Receipt Date: 20160422
  Transmission Date: 20160815
  Serious: Yes (Other)
  Sender: FDA-Public Use
  Company Number: AU-PFIZER INC-2014352652

PATIENT
  Age: 63 Year
  Sex: Female
  Weight: 64 kg

DRUGS (12)
  1. ZOMETA [Concomitant]
     Active Substance: ZOLEDRONIC ACID
     Indication: METASTASES TO BONE
  2. PALBOCICLIB [Suspect]
     Active Substance: PALBOCICLIB
     Indication: BREAST CANCER METASTATIC
     Dosage: 75 MG, UNK
     Route: 048
     Dates: start: 20140717
  3. HEPARIN SALINE [Concomitant]
     Indication: CATHETER MANAGEMENT
     Route: 042
  4. OSTELIN [Concomitant]
     Active Substance: ERGOCALCIFEROL
     Indication: SUPPLEMENTATION THERAPY
     Dosage: UNK
     Route: 048
  5. ZOMETA [Concomitant]
     Active Substance: ZOLEDRONIC ACID
     Indication: OSTEOPOROSIS
     Dosage: UNK
     Route: 042
  6. FLUOXETINE [Concomitant]
     Active Substance: FLUOXETINE HYDROCHLORIDE
     Indication: DEPRESSION
     Dosage: UNK
     Route: 048
  7. FASLODEX [Suspect]
     Active Substance: FULVESTRANT
     Indication: BREAST CANCER METASTATIC
     Dosage: 500 MG, UNK
     Route: 030
     Dates: start: 20140717
  8. PANADOL [Concomitant]
     Active Substance: ACETAMINOPHEN
     Indication: PAIN
  9. ZYRTEC [Concomitant]
     Active Substance: CETIRIZINE HYDROCHLORIDE
     Indication: SEASONAL ALLERGY
     Dosage: UNK
     Route: 048
  10. PANADOL [Concomitant]
     Active Substance: ACETAMINOPHEN
     Indication: NECK PAIN
     Dosage: UNK
     Route: 048
  11. NAPROSYN [Concomitant]
     Active Substance: NAPROXEN
     Indication: NECK PAIN
     Dosage: UNK
     Route: 048
  12. PANADEINE FORTE [Concomitant]
     Active Substance: ACETAMINOPHEN\CODEINE PHOSPHATE
     Indication: CHEST PAIN
     Dosage: UNK
     Route: 048
     Dates: start: 20160107

REACTIONS (1)
  - Cataract [Recovered/Resolved]

NARRATIVE: CASE EVENT DATE: 20141218
